FAERS Safety Report 13388555 (Version 4)
Quarter: 2018Q1

REPORT INFORMATION
  Report Type: Report from Study
  Country: None (occurrence: US)
  Receive Date: 20170331
  Receipt Date: 20180201
  Transmission Date: 20180508
  Serious: Yes (Other)
  Sender: FDA-Public Use
  Company Number: US-ABBVIE-17K-163-1921895-00

PATIENT
  Sex: Female

DRUGS (2)
  1. HUMIRA [Suspect]
     Active Substance: ADALIMUMAB
     Indication: PSORIASIS
     Route: 058
     Dates: end: 201703
  2. HUMIRA [Suspect]
     Active Substance: ADALIMUMAB
     Route: 058
     Dates: start: 201703

REACTIONS (11)
  - Retinal fibrosis [Unknown]
  - Macular degeneration [Unknown]
  - Influenza [Unknown]
  - Malaise [Unknown]
  - Cataract [Unknown]
  - Psoriasis [Unknown]
  - Injection site pain [Unknown]
  - Nasopharyngitis [Unknown]
  - Pneumonia [Unknown]
  - Vomiting [Unknown]
  - Osteoarthritis [Unknown]

NARRATIVE: CASE EVENT DATE: 2016
